FAERS Safety Report 12715191 (Version 3)
Quarter: 2016Q3

REPORT INFORMATION
  Report Type: Spontaneous
  Country: IT (occurrence: IT)
  Receive Date: 20160905
  Receipt Date: 20160908
  Transmission Date: 20161109
  Serious: Yes (Other)
  Sender: FDA-Public Use
  Company Number: IT-ROCHE-1825215

PATIENT
  Age: 41 Year
  Sex: Female

DRUGS (3)
  1. EN [Concomitant]
     Active Substance: DELORAZEPAM
     Indication: PANIC ATTACK
     Dosage: 1 MG TABLETS^ 20 TABLETS
     Route: 048
     Dates: start: 20160829, end: 20160901
  2. VALIUM [Suspect]
     Active Substance: DIAZEPAM
     Indication: PANIC ATTACK
     Dosage: ^10 MG /2 ML SOLUTION FOR INJECTION^ 3 VIALS, 2 ML
     Route: 030
     Dates: start: 20160901
  3. ELOPRAM [Concomitant]
     Active Substance: CITALOPRAM HYDROBROMIDE
     Indication: PANIC ATTACK
     Dosage: ^20 MG COATED TABLETS^ 28 TABLETS
     Route: 048
     Dates: start: 20160829, end: 20160901

REACTIONS (3)
  - Chest discomfort [Recovering/Resolving]
  - Tachycardia [Recovering/Resolving]
  - Paradoxical drug reaction [Recovering/Resolving]

NARRATIVE: CASE EVENT DATE: 20160901
